FAERS Safety Report 8396519-1 (Version None)
Quarter: 2012Q2

REPORT INFORMATION
  Report Type: 
  Country: None (occurrence: None)
  Receive Date: 20120530
  Receipt Date: 20120521
  Transmission Date: 20120825
  Serious: Yes (Death, Life-Threatening, Hospitalization, Other)
  Sender: FDA-Public Use
  Company Number: TW-ROXANE LABORATORIES, INC.-2012-RO-01287RO

PATIENT
  Age: 49 Year
  Sex: Female

DRUGS (13)
  1. METHOTREXATE [Suspect]
     Indication: ACUTE LYMPHOCYTIC LEUKAEMIA
     Dates: start: 20090701
  2. VINCRISTINE [Suspect]
     Indication: ACUTE LYMPHOCYTIC LEUKAEMIA
     Dates: start: 20090701
  3. DOXORUBICIN HCL [Suspect]
     Indication: ACUTE LYMPHOCYTIC LEUKAEMIA
     Dates: start: 20090701
  4. CYTARABINE [Suspect]
     Indication: ACUTE LYMPHOCYTIC LEUKAEMIA
     Dates: start: 20090701
  5. CYCLOPHOSPHAMIDE [Suspect]
     Indication: ANAEMIA
     Dosage: 100 MG
     Route: 048
  6. PREDNISOLONE [Suspect]
     Indication: LEUKOCYTOSIS
  7. FLUOROURACIL [Suspect]
     Indication: BREAST CANCER
  8. DEXAMETHASONE [Suspect]
     Indication: ACUTE LYMPHOCYTIC LEUKAEMIA
     Dates: start: 20090701
  9. CYCLOPHOSPHAMIDE [Suspect]
     Indication: BREAST CANCER
  10. CYCLOPHOSPHAMIDE [Suspect]
     Indication: LEUKOCYTOSIS
     Dates: start: 20090701
  11. EPIRUBICIN [Suspect]
     Indication: BREAST CANCER
  12. PREDNISOLONE [Suspect]
     Indication: ANAEMIA
     Dosage: 15 MG
  13. CYCLOPHOSPHAMIDE [Suspect]
     Indication: ACUTE LYMPHOCYTIC LEUKAEMIA

REACTIONS (6)
  - ACUTE LYMPHOCYTIC LEUKAEMIA [None]
  - LYMPHOCYTOSIS [None]
  - PNEUMONIA [None]
  - MULTI-ORGAN FAILURE [None]
  - SEPTIC SHOCK [None]
  - REFRACTORY ANAEMIA [None]
